FAERS Safety Report 19543975 (Version 1)
Quarter: 2021Q3

REPORT INFORMATION
  Report Type: Report from Study
  Country: US (occurrence: US)
  Receive Date: 20210713
  Receipt Date: 20210713
  Transmission Date: 20211014
  Serious: Yes (Hospitalization)
  Sender: FDA-Public Use
  Company Number: US-JNJFOC-20210650327

PATIENT
  Age: 52 Year
  Sex: Female
  Weight: 50.9 kg

DRUGS (5)
  1. SILDENAFIL CITRATE. [Concomitant]
     Active Substance: SILDENAFIL CITRATE
  2. NIFEDIPINE. [Concomitant]
     Active Substance: NIFEDIPINE
  3. VELETRI [Suspect]
     Active Substance: EPOPROSTENOL
     Indication: PULMONARY HYPERTENSION
     Route: 042
  4. OFEV [Concomitant]
     Active Substance: NINTEDANIB
  5. LETAIRIS [Concomitant]
     Active Substance: AMBRISENTAN

REACTIONS (2)
  - Complication associated with device [Unknown]
  - Device occlusion [Unknown]

NARRATIVE: CASE EVENT DATE: 20210621
